FAERS Safety Report 5410710-5 (Version None)
Quarter: 2007Q3

REPORT INFORMATION
  Report Type: 
  Country: None (occurrence: None)
  Receive Date: 20070810
  Receipt Date: 20070202
  Transmission Date: 20080115
  Serious: No
  Sender: FDA-Public Use
  Company Number: A0535216A

PATIENT
  Age: 73 Year
  Sex: Male
  Weight: 66.8 kg

DRUGS (8)
  1. PAXIL [Suspect]
     Indication: MAJOR DEPRESSION
     Dosage: 40MG PER DAY
     Route: 048
  2. FEXOFENADINE [Suspect]
     Indication: DRUG USE FOR UNKNOWN INDICATION
     Route: 048
  3. PREDNISONE TAB [Suspect]
     Indication: DRUG USE FOR UNKNOWN INDICATION
     Dosage: 10MG PER DAY
     Route: 048
  4. DEXTROAMPETAMINE SULFATE TAB [Suspect]
     Indication: ATTENTION DEFICIT/HYPERACTIVITY DISORDER
     Dosage: 5MG TWICE PER DAY
     Route: 048
     Dates: start: 20061121, end: 20061122
  5. EFFEXOR [Suspect]
     Dates: end: 20061101
  6. UNSPECIFIED THYROID MEDICATION [Concomitant]
     Indication: HYPOTHYROIDISM
     Dosage: 90MCG PER DAY
     Route: 048
  7. DOXEPIN HCL [Concomitant]
  8. RANITIDINE [Concomitant]
     Dosage: 150MG TWICE PER DAY
     Route: 048

REACTIONS (9)
  - DERMATITIS ATOPIC [None]
  - DRUG WITHDRAWAL SYNDROME [None]
  - EJACULATION FAILURE [None]
  - ERECTILE DYSFUNCTION [None]
  - MUSCLE SPASMS [None]
  - PRURITUS [None]
  - SEMINAL VESICULAR DISORDER [None]
  - SLEEP DISORDER [None]
  - SOMNOLENCE [None]
